FAERS Safety Report 8234146-7 (Version None)
Quarter: 2012Q1

REPORT INFORMATION
  Report Type: 
  Country: None (occurrence: None)
  Receive Date: 20120326
  Receipt Date: 20120319
  Transmission Date: 20120608
  Serious: Yes (Hospitalization)
  Sender: FDA-Public Use
  Company Number: US-BAYER-2012-027596

PATIENT
  Age: 16 Year
  Sex: Female
  Weight: 52.3 kg

DRUGS (3)
  1. YAZ [Suspect]
     Dosage: UNK
     Dates: start: 20090926, end: 20091102
  2. FLEXERIL [Concomitant]
  3. TYLENOL [Concomitant]

REACTIONS (3)
  - PAIN IN EXTREMITY [None]
  - DEEP VEIN THROMBOSIS [None]
  - MUSCLE SPASMS [None]
